FAERS Safety Report 25646406 (Version 1)
Quarter: 2025Q3

REPORT INFORMATION
  Report Type: Spontaneous
  Country: EU (occurrence: EU)
  Receive Date: 20250805
  Receipt Date: 20250805
  Transmission Date: 20251021
  Serious: Yes (Hospitalization, Other)
  Sender: MYLAN
  Company Number: EU-CINFAGATEW-2025001801

PATIENT
  Age: 18 Year
  Sex: Male

DRUGS (4)
  1. ARIPIPRAZOLE [Suspect]
     Active Substance: ARIPIPRAZOLE
     Indication: Psychiatric symptom
     Dosage: 10 MILLIGRAM, QD
     Dates: start: 202105, end: 202106
  2. ARIPIPRAZOLE [Suspect]
     Active Substance: ARIPIPRAZOLE
     Dosage: 2.5 MILLIGRAM, QD
     Dates: start: 202106
  3. DIAZEPAM [Suspect]
     Active Substance: DIAZEPAM
     Indication: Psychiatric symptom
     Dosage: 2.5 MILLIGRAM, Q3D
     Dates: start: 202105, end: 202106
  4. DIAZEPAM [Suspect]
     Active Substance: DIAZEPAM
     Dosage: 5 MILLIGRAM, QD
     Dates: start: 202106

REACTIONS (5)
  - Condition aggravated [Recovering/Resolving]
  - Psychotic symptom [Recovering/Resolving]
  - Irritability [Recovering/Resolving]
  - Sexually inappropriate behaviour [Recovering/Resolving]
  - Off label use [Unknown]

NARRATIVE: CASE EVENT DATE: 20210601
